FAERS Safety Report 16993819 (Version 2)
Quarter: 2019Q4

REPORT INFORMATION
  Report Type: Spontaneous
  Country: JP (occurrence: JP)
  Receive Date: 20191105
  Receipt Date: 20191113
  Transmission Date: 20200122
  Serious: Yes (Other)
  Sender: FDA-Public Use
  Company Number: JP-PFIZER INC-2019476014

PATIENT
  Age: 74 Year
  Sex: Male

DRUGS (3)
  1. VANCOMYCIN [Concomitant]
     Active Substance: VANCOMYCIN
     Indication: OTITIS EXTERNA
     Dosage: 400 MG, DAILY
  2. CEFTRIAXONE SODIUM. [Suspect]
     Active Substance: CEFTRIAXONE SODIUM
     Indication: OTITIS EXTERNA
     Dosage: 2 G, 1X/DAY
  3. MEROPENEM. [Concomitant]
     Active Substance: MEROPENEM
     Indication: OTITIS EXTERNA
     Dosage: 1 G, DAILY

REACTIONS (2)
  - Facial paralysis [Unknown]
  - Hepatic function abnormal [Unknown]
